FAERS Safety Report 19854172 (Version 1)
Quarter: 2021Q3

REPORT INFORMATION
  Report Type: Spontaneous
  Country: JP (occurrence: JP)
  Receive Date: 20210920
  Receipt Date: 20210920
  Transmission Date: 20211014
  Serious: Yes (Other)
  Sender: FDA-Public Use
  Company Number: JP-UCBSA-2021030212

PATIENT
  Age: 9 Decade
  Sex: Male

DRUGS (3)
  1. SMYRAF [Suspect]
     Active Substance: PEFICITINIB
     Indication: RHEUMATOID ARTHRITIS
     Route: 048
     Dates: start: 20210728
  2. KEVZARA [Concomitant]
     Active Substance: SARILUMAB
     Indication: PRODUCT USED FOR UNKNOWN INDICATION
  3. CIMZIA [Suspect]
     Active Substance: CERTOLIZUMAB PEGOL
     Indication: RHEUMATOID ARTHRITIS
     Dosage: 200 MILLIGRAM, EV 2 WEEKS(QOW)
     Route: 058
     Dates: start: 20210421, end: 20210714

REACTIONS (4)
  - Erythema [Unknown]
  - Pyrexia [Unknown]
  - Infection [Unknown]
  - Osteomyelitis [Unknown]

NARRATIVE: CASE EVENT DATE: 2021
